FAERS Safety Report 8028702-9 (Version None)
Quarter: 2012Q1

REPORT INFORMATION
  Report Type: 
  Country: None (occurrence: None)
  Receive Date: 20120106
  Receipt Date: 20120104
  Transmission Date: 20120608
  Serious: No
  Sender: FDA-Public Use
  Company Number: US-PFIZER INC-2012002752

PATIENT
  Age: 70 Year
  Sex: Female
  Weight: 57.6 kg

DRUGS (4)
  1. PREMPRO [Suspect]
     Indication: HOT FLUSH
     Dosage: 0.3/1.5 MG, DAILY
     Route: 048
  2. PRASTERONE [Suspect]
     Dosage: UNK
     Route: 048
  3. PREMPRO [Suspect]
     Indication: OSTEOPOROSIS
     Dosage: UNK
  4. PRASTERONE [Suspect]
     Dosage: 5MG, UNKNOWN
     Route: 048

REACTIONS (2)
  - HOT FLUSH [None]
  - WRONG TECHNIQUE IN DRUG USAGE PROCESS [None]
